FAERS Safety Report 6394368-7 (Version None)
Quarter: 2009Q4

REPORT INFORMATION
  Report Type: 
  Country: None (occurrence: None)
  Receive Date: 20091006
  Receipt Date: 20090922
  Transmission Date: 20100525
  Serious: Yes (Other)
  Sender: FDA-Public Use
  Company Number: MPS1-1000251

PATIENT
  Age: 7 Year
  Sex: Male
  Weight: 19 kg

DRUGS (9)
  1. ALDURAZYME [Suspect]
     Indication: MUCOPOLYSACCHARIDOSIS I
     Dosage: 20 MG 1X/W
     Dates: start: 20090701
  2. AUGMENTIN '125' [Concomitant]
  3. CELESTONE (BETAMETHASONE) [Concomitant]
  4. BUDESONIDE [Concomitant]
  5. ZYRTEC [Concomitant]
  6. CHLOR-TRIMETON [Concomitant]
  7. ACETAMINOPHEN [Concomitant]
  8. DECADRON [Concomitant]
  9. EUTHYROX      (LEVOTHYROXINE SODUM) [Concomitant]

REACTIONS (2)
  - CYANOSIS [None]
  - DYSPNOEA [None]
